FAERS Safety Report 10579559 (Version 1)
Quarter: 2014Q4

REPORT INFORMATION
  Report Type: Spontaneous
  Country: IT (occurrence: IT)
  Receive Date: 20141112
  Receipt Date: 20141112
  Transmission Date: 20150529
  Serious: Yes (Hospitalization)
  Sender: FDA-Public Use
  Company Number: IT-BAYER-2014-167545

PATIENT
  Age: 76 Year
  Sex: Male

DRUGS (9)
  1. OMNIC [Concomitant]
     Active Substance: TAMSULOSIN HYDROCHLORIDE
     Dosage: 10 MG, DAILY DOSE
     Route: 048
  2. EUTIROX [Concomitant]
     Active Substance: LEVOTHYROXINE SODIUM
     Dosage: 50 ?G, DAILY DOSE
     Route: 048
  3. LANTUS [Concomitant]
     Active Substance: INSULIN GLARGINE
     Dosage: UNK
     Route: 058
  4. COUMADIN [Suspect]
     Active Substance: WARFARIN SODIUM
     Indication: ATRIAL FIBRILLATION
     Dosage: 35 MG, WEEKLY
     Route: 048
     Dates: start: 20021101, end: 20141023
  5. LASIX [Concomitant]
     Active Substance: FUROSEMIDE
     Dosage: 500 MG, DAILY DOSE
     Route: 048
  6. CARDIOASPIRIN [Suspect]
     Active Substance: ASPIRIN
     Indication: AORTIC BYPASS
     Dosage: 100 MG, DAILY DOSE
     Route: 048
     Dates: start: 20021101, end: 20141023
  7. HUMALOG [Concomitant]
     Active Substance: INSULIN LISPRO
  8. BISOPROLOL FUMARATE. [Concomitant]
     Active Substance: BISOPROLOL FUMARATE
     Dosage: 1.25 MG, DAILY DOSE
     Route: 048
  9. KANRENOL [Concomitant]
     Active Substance: CANRENOATE POTASSIUM
     Dosage: 100 MG, DAILY DOSE
     Route: 048

REACTIONS (1)
  - Anaemia [Recovering/Resolving]

NARRATIVE: CASE EVENT DATE: 20141014
